FAERS Safety Report 19153407 (Version 1)
Quarter: 2021Q2

REPORT INFORMATION
  Report Type: Spontaneous
  Country: US (occurrence: US)
  Receive Date: 20210419
  Receipt Date: 20210419
  Transmission Date: 20210717
  Serious: Yes (Life-Threatening)
  Sender: FDA-Public Use
  Company Number: None

PATIENT
  Age: 50 Year
  Weight: 97.52 kg

DRUGS (1)
  1. SUBOXONE [Suspect]
     Active Substance: BUPRENORPHINE HYDROCHLORIDE\NALOXONE HYDROCHLORIDE
     Indication: DRUG DEPENDENCE
     Dosage: OTHER DOSE:8/2 MG SL FILM;OTHER FREQUENCY:BID FILM;?
     Route: 060

REACTIONS (4)
  - Nausea [None]
  - Diarrhoea [None]
  - Oral mucosal blistering [None]
  - Vomiting [None]

NARRATIVE: CASE EVENT DATE: 20210408
